FAERS Safety Report 7865267-6 (Version None)
Quarter: 2011Q4

REPORT INFORMATION
  Report Type: 
  Country: None (occurrence: None)
  Receive Date: 20111028
  Receipt Date: 20101111
  Transmission Date: 20120403
  Serious: No
  Sender: FDA-Public Use
  Company Number: US-GLAXOSMITHKLINE-A0892041A

PATIENT
  Age: 61 Year
  Sex: Female

DRUGS (14)
  1. ADVAIR DISKUS 100/50 [Suspect]
     Indication: ASTHMA
     Dosage: 1PUFF TWICE PER DAY
     Route: 055
     Dates: start: 20070101, end: 20101021
  2. SYNTHROID [Concomitant]
  3. CALCIUM CARBONATE [Concomitant]
  4. LASIX [Concomitant]
  5. POTASSIUM [Concomitant]
  6. CRESTOR [Concomitant]
  7. TOLNAFTATE [Concomitant]
  8. ALBUTEROL [Concomitant]
  9. PEPCID [Concomitant]
  10. FLONASE [Suspect]
     Indication: SINUS DISORDER
     Dosage: 2SPR PER DAY
     Route: 045
     Dates: start: 20100101
  11. LISINOPRIL [Concomitant]
  12. LOMOTIL [Concomitant]
  13. PRILOSEC [Concomitant]
  14. TRAVATAN [Concomitant]

REACTIONS (1)
  - LARYNGITIS [None]
